FAERS Safety Report 5521850-4 (Version None)
Quarter: 2007Q4

REPORT INFORMATION
  Report Type: 
  Country: None (occurrence: None)
  Receive Date: 20071120
  Receipt Date: 20071108
  Transmission Date: 20080405
  Serious: Yes (Other)
  Sender: FDA-Public Use
  Company Number: JP-ROCHE-529303

PATIENT
  Age: 13 Day
  Sex: Male

DRUGS (15)
  1. DENOSINE IV [Suspect]
     Indication: CONGENITAL CYTOMEGALOVIRUS INFECTION
     Route: 041
     Dates: start: 20061202, end: 20061203
  2. DENOSINE IV [Suspect]
     Route: 041
     Dates: start: 20061204, end: 20061212
  3. BLOOD, PACKED RED CELLS [Concomitant]
     Route: 042
     Dates: start: 20061129, end: 20061201
  4. FRESH FROZEN PLASMA [Concomitant]
     Route: 041
     Dates: start: 20061129, end: 20061129
  5. FRESH FROZEN PLASMA [Concomitant]
     Route: 041
     Dates: start: 20061130, end: 20061201
  6. IMMUNE GLOBULIN INTRAVENOUS (HUMAN) [Concomitant]
     Route: 041
     Dates: start: 20061201, end: 20061202
  7. PLATELETS [Concomitant]
     Route: 041
     Dates: start: 20061130, end: 20061202
  8. PLATELETS [Concomitant]
     Route: 041
     Dates: start: 20061204, end: 20061206
  9. PLATELETS [Concomitant]
     Route: 041
     Dates: start: 20061210, end: 20061217
  10. VICCILLIN [Concomitant]
     Route: 042
     Dates: start: 20061129, end: 20061206
  11. VICCILLIN [Concomitant]
     Route: 042
     Dates: start: 20061207, end: 20061209
  12. CLAFORAN [Concomitant]
     Route: 042
     Dates: start: 20061129, end: 20061207
  13. CLAFORAN [Concomitant]
     Route: 042
     Dates: start: 20061207, end: 20061209
  14. GENTACIN [Concomitant]
     Route: 042
     Dates: start: 20061201, end: 20061207
  15. FOSCARNET [Concomitant]
     Route: 041

REACTIONS (1)
  - BONE MARROW FAILURE [None]
